FAERS Safety Report 16016676 (Version 1)
Quarter: 2019Q1

REPORT INFORMATION
  Report Type: Spontaneous
  Country: US (occurrence: US)
  Receive Date: 20190131
  Receipt Date: 20190131
  Transmission Date: 20190418
  Serious: Yes (Hospitalization)
  Sender: FDA-Public Use
  Company Number: None

PATIENT
  Age: 84 Year
  Sex: Male

DRUGS (1)
  1. FUROSEMIDE. [Suspect]
     Active Substance: FUROSEMIDE
     Route: 048
     Dates: start: 20181221, end: 20181224

REACTIONS (4)
  - Acute kidney injury [None]
  - Hypovolaemia [None]
  - Hypotension [None]
  - Presyncope [None]

NARRATIVE: CASE EVENT DATE: 20181222
